FAERS Safety Report 5212510-8 (Version None)
Quarter: 2006Q4

REPORT INFORMATION
  Report Type: 
  Country: None (occurrence: None)
  Receive Date: 20061130
  Receipt Date: 20060608
  Transmission Date: 20070319
  Serious: Yes (Life-Threatening, Disabling, Other)
  Sender: FDA-Public Use
  Company Number: WAES 0606USA01678

PATIENT
  Age: 63 Year
  Sex: Female

DRUGS (3)
  1. FOSAMAX [Suspect]
     Indication: OSTEOPOROSIS
     Dosage: 70 MG/DAILY/PO;  10 MG/DAILY/PO
     Route: 048
     Dates: end: 20001001
  2. FOSAMAX [Suspect]
     Indication: OSTEOPOROSIS
     Dosage: 70 MG/DAILY/PO;  10 MG/DAILY/PO
     Route: 048
     Dates: start: 20001001, end: 20051201
  3. METHOTREXATE [Concomitant]

REACTIONS (1)
  - OSTEOMYELITIS [None]
